FAERS Safety Report 8020629-1 (Version None)
Quarter: 2012Q1

REPORT INFORMATION
  Report Type: 
  Country: None (occurrence: None)
  Receive Date: 20120103
  Receipt Date: 20111223
  Transmission Date: 20120608
  Serious: Yes (Hospitalization)
  Sender: FDA-Public Use
  Company Number: US-ASTRAZENECA-2011SE78217

PATIENT
  Age: 47 Year
  Sex: Male

DRUGS (8)
  1. SEROQUEL XR [Suspect]
     Indication: BIPOLAR DISORDER
     Route: 048
     Dates: start: 20070101
  2. BISOPROLOL FUMARATE AND HYDROCHLOROTHIAZIDE [Concomitant]
     Indication: BLOOD PRESSURE ABNORMAL
     Route: 048
  3. ASPIRIN [Concomitant]
     Route: 048
  4. CLONAZEPAM [Concomitant]
     Indication: TREMOR
     Route: 048
  5. PRAVASTATIN SODIUM [Concomitant]
     Indication: BLOOD CHOLESTEROL ABNORMAL
     Route: 048
  6. CLONAZEPAM [Concomitant]
     Indication: SLEEP DISORDER
     Route: 048
  7. BISOPROLOL HCL [Concomitant]
     Indication: BLOOD PRESSURE ABNORMAL
     Route: 048
  8. NAPROXEN [Concomitant]
     Indication: ARTHRITIS
     Route: 048

REACTIONS (4)
  - HYPERSOMNIA [None]
  - OFF LABEL USE [None]
  - DRUG DOSE OMISSION [None]
  - SUICIDAL IDEATION [None]
